FAERS Safety Report 8262600-0 (Version None)
Quarter: 2012Q2

REPORT INFORMATION
  Report Type: 
  Country: None (occurrence: None)
  Receive Date: 20120405
  Receipt Date: 20120327
  Transmission Date: 20120825
  Serious: Yes (Hospitalization)
  Sender: FDA-Public Use
  Company Number: US-ASTRAZENECA-2012SE20363

PATIENT
  Age: 21 Year
  Sex: Female

DRUGS (1)
  1. SYMBICORT [Suspect]
     Dosage: 160/4.5 MCG 2 PUFF THO TIMES DAILY
     Route: 055

REACTIONS (3)
  - WHEEZING [None]
  - COUGH [None]
  - CONDITION AGGRAVATED [None]
